FAERS Safety Report 10214540 (Version 1)
Quarter: 2014Q2

REPORT INFORMATION
  Report Type: Spontaneous
  Country: US (occurrence: US)
  Receive Date: 20140603
  Receipt Date: 20140603
  Transmission Date: 20141212
  Serious: Yes (Life-Threatening, Hospitalization, Disabling, Other)
  Sender: FDA-Public Use
  Company Number: US-GLAXOSMITHKLINE-A1064734A

PATIENT
  Age: 8 Year
  Sex: Male

DRUGS (7)
  1. LAMICTAL [Suspect]
     Indication: CONVULSION
     Dosage: 25MG TWICE PER DAY
     Route: 048
     Dates: start: 20131230, end: 20140111
  2. DEPAKENE [Concomitant]
  3. KLONOPIN [Concomitant]
  4. ATIVAN [Concomitant]
  5. VALIUM [Concomitant]
  6. BARBITURATE [Concomitant]
  7. ANTICONVULSANT [Concomitant]

REACTIONS (10)
  - Toxic epidermal necrolysis [Recovering/Resolving]
  - Thermal burn [Recovering/Resolving]
  - Skin irritation [Recovering/Resolving]
  - Skin exfoliation [Recovering/Resolving]
  - Skin necrosis [Recovering/Resolving]
  - Blister [Recovering/Resolving]
  - Dermatitis [Recovering/Resolving]
  - Skin exfoliation [Unknown]
  - Lip oedema [Unknown]
  - Tongue oedema [Unknown]
